FAERS Safety Report 4998724-0 (Version None)
Quarter: 2006Q2

REPORT INFORMATION
  Report Type: 
  Country: None (occurrence: None)
  Receive Date: 20060508
  Receipt Date: 20060420
  Transmission Date: 20061013
  Serious: Yes (Other)
  Sender: FDA-Public Use
  Company Number: 8014882

PATIENT
  Age: 51 Year
  Sex: Male
  Weight: 65 kg

DRUGS (3)
  1. KEPPRA [Suspect]
     Indication: CONVULSION
     Dosage: 1500 MG 2/D PO
     Route: 048
  2. TEMODAL [Suspect]
     Indication: CHEMOTHERAPY
     Dosage: 350 MG 1/D PO
     Route: 048
  3. TEGRETOL [Concomitant]

REACTIONS (2)
  - LEUKOPENIA [None]
  - NEUTROPENIA [None]
